FAERS Safety Report 20943148 (Version 2)
Quarter: 2023Q2

REPORT INFORMATION
  Report Type: Report from Study
  Country: US (occurrence: US)
  Receive Date: 20220610
  Receipt Date: 20230519
  Transmission Date: 20230721
  Serious: Yes (Other)
  Sender: FDA-Public Use
  Company Number: US-ORG100014127-2022000618

PATIENT
  Age: 55 Year
  Sex: Female

DRUGS (12)
  1. LYSODREN [Suspect]
     Active Substance: MITOTANE
     Indication: Adrenal gland cancer
     Dosage: 3 TABLETS EVERY 8 HOURS
     Route: 048
     Dates: start: 20210912
  2. FAMOTIDINE [Concomitant]
     Active Substance: FAMOTIDINE
     Indication: Product used for unknown indication
  3. Irbesartan/hctz 300/12.5 [Concomitant]
     Indication: Product used for unknown indication
  4. OMEPRAZOLE [Concomitant]
     Active Substance: OMEPRAZOLE
     Indication: Product used for unknown indication
  5. Vitamin D3 10000 IU softgel capsule [Concomitant]
     Indication: Product used for unknown indication
  6. PREDNISONE [Concomitant]
     Active Substance: PREDNISONE
     Indication: Product used for unknown indication
  7. PREDNISONE [Concomitant]
     Active Substance: PREDNISONE
     Indication: Product used for unknown indication
  8. Prednisone 5 mg Tablets [Concomitant]
     Indication: Product used for unknown indication
  9. Fludrocortisone 0.1 mg tablet [Concomitant]
     Indication: Product used for unknown indication
  10. Rosuvastatin 20 mg tablets [Concomitant]
     Indication: Product used for unknown indication
  11. Synthroid 0.075 mg (75 MCG) tablets [Concomitant]
     Indication: Product used for unknown indication
  12. Vitamin B-1 100 mg tablets [Concomitant]
     Indication: Product used for unknown indication

REACTIONS (2)
  - Neuropathy peripheral [Unknown]
  - Depression [Recovered/Resolved]

NARRATIVE: CASE EVENT DATE: 20210912
